FAERS Safety Report 23822017 (Version 1)
Quarter: 2024Q2

REPORT INFORMATION
  Report Type: Report from Study
  Country: ES (occurrence: ES)
  Receive Date: 20240506
  Receipt Date: 20240506
  Transmission Date: 20240716
  Serious: Yes (Death)
  Sender: FDA-Public Use
  Company Number: ES-SUN PHARMACEUTICAL INDUSTRIES LTD-2024RR-444527

PATIENT
  Age: 61 Year
  Sex: Female

DRUGS (2)
  1. AMPHOTERICIN B [Suspect]
     Active Substance: AMPHOTERICIN B
     Indication: Fusarium infection
     Dosage: 180 MILLIGRAM, QD
     Route: 065
  2. VORICONAZOLE [Suspect]
     Active Substance: VORICONAZOLE
     Indication: Fusarium infection
     Dosage: 120 MILLIGRAM, BID
     Route: 040

REACTIONS (1)
  - Disease progression [Fatal]
